FAERS Safety Report 13851339 (Version 3)
Quarter: 2017Q4

REPORT INFORMATION
  Report Type: Spontaneous
  Country: US (occurrence: US)
  Receive Date: 20170809
  Receipt Date: 20171011
  Transmission Date: 20180320
  Serious: Yes (Other)
  Sender: FDA-Public Use
  Company Number: US-OTSUKA-2017_017244

PATIENT
  Age: 32 Year
  Sex: Male

DRUGS (2)
  1. ZYPREXA [Concomitant]
     Active Substance: OLANZAPINE
     Indication: PRODUCT USED FOR UNKNOWN INDICATION
     Dosage: UNK
     Route: 065
  2. ABILIFY MAINTENA [Suspect]
     Active Substance: ARIPIPRAZOLE
     Indication: PRODUCT USED FOR UNKNOWN INDICATION
     Dosage: UNK
     Route: 065

REACTIONS (3)
  - Drug dose omission [Unknown]
  - Physical assault [Unknown]
  - Aggression [Unknown]
